FAERS Safety Report 6466032-7 (Version None)
Quarter: 2009Q4

REPORT INFORMATION
  Report Type: 
  Country: None (occurrence: None)
  Receive Date: 20091202
  Receipt Date: 20091123
  Transmission Date: 20100525
  Serious: No
  Sender: FDA-Public Use
  Company Number: US-JNJFOC-20091107022

PATIENT
  Age: 56 Year
  Sex: Male

DRUGS (5)
  1. FENTANYL [Suspect]
     Route: 062
  2. FENTANYL [Suspect]
     Route: 062
  3. FENTANYL [Suspect]
     Route: 062
  4. FENTANYL [Suspect]
     Indication: PAIN
     Route: 062
  5. FENTANYL [Suspect]
     Indication: PAIN
     Route: 062

REACTIONS (5)
  - DRUG INEFFECTIVE [None]
  - HYPERHIDROSIS [None]
  - HYPERTENSION [None]
  - PAIN [None]
  - WRONG TECHNIQUE IN DRUG USAGE PROCESS [None]
